FAERS Safety Report 5610711-8 (Version None)
Quarter: 2008Q1

REPORT INFORMATION
  Report Type: 
  Country: None (occurrence: None)
  Receive Date: 20080130
  Receipt Date: 20080130
  Transmission Date: 20080703
  Serious: Yes (Death)
  Sender: FDA-Public Use
  Company Number: None

PATIENT
  Sex: Male
  Weight: 68.0396 kg

DRUGS (1)
  1. HEPARIN [Suspect]
     Dates: start: 20080123, end: 20080125

REACTIONS (5)
  - ARRHYTHMIA [None]
  - GENERAL PHYSICAL HEALTH DETERIORATION [None]
  - NONSPECIFIC REACTION [None]
  - ORGAN FAILURE [None]
  - THROMBOSIS [None]
